FAERS Safety Report 13763193 (Version 1)
Quarter: 2017Q3

REPORT INFORMATION
  Report Type: Spontaneous
  Country: US (occurrence: US)
  Receive Date: 20170718
  Receipt Date: 20170718
  Transmission Date: 20171127
  Serious: No
  Sender: FDA-Public Use
  Company Number: US-WEST-WARD PHARMACEUTICALS CORP.-US-H14001-17-00109

PATIENT
  Age: 58 Year
  Sex: Female
  Weight: 72.64 kg

DRUGS (10)
  1. RAMIPRIL CAPSULES USP [Suspect]
     Active Substance: RAMIPRIL
     Indication: EJECTION FRACTION DECREASED
  2. CORN STARCH [Suspect]
     Active Substance: STARCH, CORN
     Indication: CARDIAC MURMUR
     Route: 048
     Dates: start: 20170105, end: 20170107
  3. VITAMIN D [Concomitant]
     Active Substance: CHOLECALCIFEROL
     Indication: PRODUCT USED FOR UNKNOWN INDICATION
     Route: 065
  4. XARELTO [Concomitant]
     Active Substance: RIVAROXABAN
     Indication: PRODUCT USED FOR UNKNOWN INDICATION
     Route: 065
  5. LEVOTHYROXINE. [Concomitant]
     Active Substance: LEVOTHYROXINE
     Indication: PRODUCT USED FOR UNKNOWN INDICATION
     Route: 065
  6. RAMIPRIL CAPSULES USP [Suspect]
     Active Substance: RAMIPRIL
     Indication: CARDIAC MURMUR
     Route: 048
     Dates: start: 20170105, end: 20170107
  7. MAGNESIUM [Concomitant]
     Active Substance: MAGNESIUM
     Indication: PRODUCT USED FOR UNKNOWN INDICATION
     Route: 065
  8. CORN STARCH [Suspect]
     Active Substance: STARCH, CORN
     Indication: EJECTION FRACTION DECREASED
  9. RIZATRIPTAN. [Concomitant]
     Active Substance: RIZATRIPTAN
     Indication: MIGRAINE
     Route: 065
  10. FOSAMAX [Concomitant]
     Active Substance: ALENDRONATE SODIUM
     Indication: PRODUCT USED FOR UNKNOWN INDICATION
     Route: 065

REACTIONS (2)
  - Reaction to excipient [Recovering/Resolving]
  - Migraine [Recovering/Resolving]

NARRATIVE: CASE EVENT DATE: 20170106
